FAERS Safety Report 7487786-7 (Version None)
Quarter: 2011Q2

REPORT INFORMATION
  Report Type: 
  Country: None (occurrence: None)
  Receive Date: 20110518
  Receipt Date: 20110509
  Transmission Date: 20111010
  Serious: Yes (Other)
  Sender: FDA-Public Use
  Company Number: PHFR2011GB01319

PATIENT
  Sex: Male
  Weight: 87.8 kg

DRUGS (4)
  1. VALPROATE SODIUM [Concomitant]
     Indication: EPILEPSY
     Dosage: 300 MG, BID
     Route: 048
  2. AMOXICILLIN [Concomitant]
     Indication: URINARY TRACT INFECTION
     Dosage: 500 MG, TID
     Dates: start: 20110406, end: 20110414
  3. CLOZARIL [Suspect]
     Indication: SCHIZOPHRENIA, PARANOID TYPE
     Dosage: 100 MG, BID
     Route: 048
     Dates: start: 20110120
  4. PEPTAC [Concomitant]
     Indication: VOMITING
     Dosage: 10 ML, QID
     Route: 048

REACTIONS (4)
  - URINARY TRACT INFECTION [None]
  - TACHYCARDIA [None]
  - VOMITING [None]
  - GRAND MAL CONVULSION [None]
